FAERS Safety Report 11912106 (Version 2)
Quarter: 2016Q1

REPORT INFORMATION
  Report Type: Spontaneous
  Country: US (occurrence: US)
  Receive Date: 20160112
  Receipt Date: 20160209
  Transmission Date: 20160526
  Serious: Yes (Life-Threatening, Hospitalization)
  Sender: FDA-Public Use
  Company Number: US-MYLANLABS-2016M1001225

PATIENT

DRUGS (1)
  1. IBUPROFEN. [Suspect]
     Active Substance: IBUPROFEN
     Indication: PRODUCT USED FOR UNKNOWN INDICATION
     Dosage: 600 PILLS OF 200MG IBUPROFEN, ROUGHLY 120G
     Route: 048

REACTIONS (6)
  - Hypotension [Recovering/Resolving]
  - Acute kidney injury [Recovering/Resolving]
  - Acidosis [Recovering/Resolving]
  - Gastrointestinal haemorrhage [Recovering/Resolving]
  - Depressed level of consciousness [Recovering/Resolving]
  - Intentional overdose [Recovering/Resolving]
